FAERS Safety Report 10162676 (Version 1)
Quarter: 2014Q2

REPORT INFORMATION
  Report Type: Spontaneous
  Country: US (occurrence: US)
  Receive Date: 20140509
  Receipt Date: 20140509
  Transmission Date: 20141212
  Serious: Yes (Hospitalization)
  Sender: FDA-Public Use
  Company Number: US-B.I. PHARMACEUTICALS,INC./RIDGEFIELD-2014-BI-20372BP

PATIENT
  Age: 83 Year
  Sex: Female
  Weight: 48 kg

DRUGS (9)
  1. PRADAXA [Suspect]
     Indication: PRODUCT USED FOR UNKNOWN INDICATION
     Dosage: 300 MG
     Route: 048
     Dates: start: 201312
  2. MINOXIDIL [Concomitant]
     Indication: HYPERTENSION
     Dosage: 50 MG
     Route: 048
  3. FUROSEMIDE [Concomitant]
     Indication: LOCAL SWELLING
     Dosage: 40 MG
     Route: 048
  4. POT-CHLOR [Concomitant]
     Dosage: 10 MEQ
     Route: 048
  5. PRAMIPEXOLE [Concomitant]
     Indication: RESTLESS LEGS SYNDROME
     Dosage: 2 MG
     Route: 048
  6. VITAMIN B12 [Concomitant]
     Dosage: FORMULATION: SUBCUTANEOUS
     Route: 058
  7. VITAMIN D [Concomitant]
     Dosage: 7142.8571 MG
     Route: 048
  8. ALPRAZOLAM [Concomitant]
     Dosage: 40 MG
     Route: 048
  9. LORTAB [Concomitant]
     Indication: PAIN
     Dosage: 40 MG
     Route: 048

REACTIONS (2)
  - Blood sodium decreased [Recovered/Resolved]
  - Dehydration [Recovered/Resolved]
